FAERS Safety Report 9174286 (Version 3)
Quarter: 2013Q2

REPORT INFORMATION
  Report Type: Spontaneous
  Country: JP (occurrence: JP)
  Receive Date: 20130320
  Receipt Date: 20130611
  Transmission Date: 20140414
  Serious: Yes (Death, Hospitalization, Other)
  Sender: FDA-Public Use
  Company Number: PHHY2013JP026847

PATIENT
  Age: 81 Year
  Sex: Male

DRUGS (1)
  1. GLIVEC [Suspect]
     Indication: GASTROINTESTINAL STROMAL TUMOUR
     Dosage: 300MG TO 400MG DAILY
     Route: 048
     Dates: start: 20041215, end: 20100715

REACTIONS (4)
  - Multi-organ failure [Fatal]
  - Myelodysplastic syndrome [Unknown]
  - Gastric cancer [Unknown]
  - Second primary malignancy [Unknown]
